FAERS Safety Report 6094662-3 (Version None)
Quarter: 2009Q1

REPORT INFORMATION
  Report Type: 
  Country: None (occurrence: None)
  Receive Date: 20090226
  Receipt Date: 20090218
  Transmission Date: 20090719
  Serious: Yes (Hospitalization)
  Sender: FDA-Public Use
  Company Number: JP-GENENTECH-277846

PATIENT
  Age: 58 Year
  Sex: Male

DRUGS (3)
  1. RITUXAN [Suspect]
     Indication: ACQUIRED HAEMOPHILIA
     Dosage: 375 MG/M2, UNK
     Route: 042
     Dates: start: 20030101
  2. PREDNISOLONE [Concomitant]
     Indication: ACQUIRED HAEMOPHILIA
     Dosage: 60 MG, QD
  3. PREDNISOLONE [Concomitant]
     Dosage: 7.5 MG, QD

REACTIONS (1)
  - MUSCLE HAEMORRHAGE [None]
